FAERS Safety Report 10762948 (Version 1)
Quarter: 2015Q1

REPORT INFORMATION
  Report Type: Report from Study
  Country: TR (occurrence: TR)
  Receive Date: 20150204
  Receipt Date: 20150204
  Transmission Date: 20150721
  Serious: Yes (Death, Life-Threatening, Hospitalization)
  Sender: FDA-Public Use
  Company Number: TR-DSJP-DSE-2015-103144

PATIENT

DRUGS (2)
  1. OLMETEC PLUS [Suspect]
     Active Substance: HYDROCHLOROTHIAZIDE\OLMESARTAN MEDOXOMIL
     Indication: PRODUCT USED FOR UNKNOWN INDICATION
     Dosage: 10 DF, SINGLE
     Route: 048
  2. LIBRADIN                           /01301602/ [Suspect]
     Active Substance: BARNIDIPINE HYDROCHLORIDE
     Indication: PRODUCT USED FOR UNKNOWN INDICATION
     Dosage: 20 DF, SINGLE
     Route: 048

REACTIONS (10)
  - Altered state of consciousness [Fatal]
  - Hypoaesthesia [Fatal]
  - Ventricular fibrillation [Fatal]
  - Hypotension [Fatal]
  - Vomiting [Fatal]
  - Headache [Fatal]
  - Respiratory distress [Fatal]
  - Dizziness [Fatal]
  - Poisoning [Fatal]
  - Overdose [Fatal]
